FAERS Safety Report 11029456 (Version 1)
Quarter: 2015Q2

REPORT INFORMATION
  Report Type: Spontaneous
  Country: CH (occurrence: CH)
  Receive Date: 20150415
  Receipt Date: 20150415
  Transmission Date: 20150821
  Serious: Yes (Death)
  Sender: FDA-Public Use
  Company Number: CH-ROCHE-1562192

PATIENT
  Age: 57 Year
  Sex: Female
  Weight: 90 kg

DRUGS (19)
  1. TAMIFLU [Suspect]
     Active Substance: OSELTAMIVIR PHOSPHATE
     Indication: INFLUENZA
     Dosage: THE PATIENT ECEIVED A TOTAL OF 300 MG ON 13/FEB/2015
     Route: 048
     Dates: start: 20150213, end: 20150217
  2. SOLU-MEDROL [Concomitant]
     Active Substance: METHYLPREDNISOLONE SODIUM SUCCINATE
     Route: 042
     Dates: start: 20150213, end: 20150213
  3. DOSPIR [Suspect]
     Active Substance: ALBUTEROL SULFATE\IPRATROPIUM BROMIDE
     Indication: PRODUCT USED FOR UNKNOWN INDICATION
     Dosage: SOLUTION FOR INHALATION SINGLE DOSES?1 MG/5 MG SIX TIMES DAILY
     Route: 055
     Dates: start: 20150213
  4. NITROGLYCERIN. [Concomitant]
     Active Substance: NITROGLYCERIN
     Dosage: NITROGLYCERINE TTS 10
     Route: 062
     Dates: start: 20150213
  5. ASPEGIC (LYSINE ASPIRIN) [Concomitant]
     Route: 042
     Dates: start: 20150213
  6. ASPIRIN. [Concomitant]
     Active Substance: ASPIRIN
     Route: 048
     Dates: start: 20150214
  7. KLACID (SWITZERLAND) [Concomitant]
     Active Substance: CLARITHROMYCIN
     Route: 048
     Dates: start: 20150213, end: 20150213
  8. FRAGMIN [Concomitant]
     Active Substance: DALTEPARIN SODIUM
     Dosage: LATER 2500 IU DAILY.
     Route: 058
     Dates: start: 20150213
  9. ESMERON [Concomitant]
     Active Substance: ROCURONIUM BROMIDE
     Route: 042
     Dates: start: 20150216
  10. TAZOBAC [Suspect]
     Active Substance: PIPERACILLIN SODIUM\TAZOBACTAM SODIUM
     Indication: INFLUENZA
     Route: 042
     Dates: start: 20150213, end: 20150216
  11. SYMBICORT [Concomitant]
     Active Substance: BUDESONIDE\FORMOTEROL FUMARATE DIHYDRATE
     Dosage: 200/6 MCG 1 INHALATIONS DAILY
     Route: 055
     Dates: start: 20150213
  12. DOMPERIDON [Concomitant]
     Active Substance: DOMPERIDONE
     Dosage: ONCE
     Route: 048
     Dates: start: 20150213
  13. PARACETAMOL [Concomitant]
     Active Substance: ACETAMINOPHEN
     Dosage: ONCE
     Route: 065
     Dates: start: 20150213
  14. MORPHIN (SWITZERLAND) [Concomitant]
     Dosage: ONCE
     Route: 048
     Dates: start: 20150213
  15. PREDNISON [Suspect]
     Active Substance: PREDNISONE
     Indication: CHRONIC OBSTRUCTIVE PULMONARY DISEASE
     Route: 048
     Dates: start: 20150213
  16. DISOPRIVAN [Concomitant]
     Active Substance: PROPOFOL
     Route: 042
     Dates: start: 20150216
  17. EPHEDRIN [Concomitant]
     Active Substance: EPHEDRINE HYDROCHLORIDE
     Route: 042
     Dates: start: 20150216
  18. FENTANYL. [Concomitant]
     Active Substance: FENTANYL
     Route: 040
     Dates: start: 20150216
  19. TORASEMIDE [Concomitant]
     Active Substance: TORSEMIDE
     Route: 048
     Dates: start: 20150215

REACTIONS (3)
  - Metabolic encephalopathy [Fatal]
  - Seizure [Fatal]
  - Hypoglycaemia [Fatal]

NARRATIVE: CASE EVENT DATE: 20150216
